FAERS Safety Report 5238346-X (Version None)
Quarter: 2007Q1

REPORT INFORMATION
  Report Type: 
  Country: None (occurrence: None)
  Receive Date: 20070215
  Receipt Date: 20070131
  Transmission Date: 20070707
  Serious: Yes (Other)
  Sender: FDA-Public Use
  Company Number: PHBS2007RU02154

PATIENT
  Age: 29 Year
  Sex: Female

DRUGS (2)
  1. LEVOTHYROXINE SODIUM [Suspect]
     Indication: POST PROCEDURAL HYPOTHYROIDISM
     Dosage: 200 MG/DAY
     Dates: start: 19970101
  2. GLEEVEC [Suspect]
     Indication: CHRONIC MYELOID LEUKAEMIA
     Dosage: 400 MG/DAY
     Dates: start: 20030610, end: 20060801

REACTIONS (2)
  - DRUG EXPOSURE DURING PREGNANCY [None]
  - STILLBIRTH [None]
